FAERS Safety Report 9198482 (Version 1)
Quarter: 2013Q1

REPORT INFORMATION
  Report Type: Spontaneous
  Country: US (occurrence: None)
  Receive Date: 20130327
  Receipt Date: 20130327
  Transmission Date: 20140127
  Serious: Yes (Hospitalization)
  Sender: FDA-Public Use
  Company Number: None

PATIENT
  Age: 41 Year
  Sex: Male
  Weight: 91 kg

DRUGS (5)
  1. WARFARIN [Suspect]
     Indication: DEEP VEIN THROMBOSIS
     Route: 048
     Dates: start: 20120620, end: 20120722
  2. OXYCODONE [Concomitant]
  3. RISPERIDONE [Concomitant]
  4. DEPAKOTE ER [Concomitant]
  5. TRAZODONE [Concomitant]

REACTIONS (10)
  - Duodenitis [None]
  - Oesophagitis [None]
  - Haematuria [None]
  - Melaena [None]
  - Haematoma [None]
  - Lip injury [None]
  - Lip haemorrhage [None]
  - Coagulopathy [None]
  - International normalised ratio increased [None]
  - Treatment noncompliance [None]
